FAERS Safety Report 8802508 (Version 2)
Quarter: 2012Q4

REPORT INFORMATION
  Report Type: 
  Country: US (occurrence: US)
  Receive Date: 20120921
  Receipt Date: 20121115
  Transmission Date: 20130627
  Serious: No
  Sender: FDA-Public Use
  Company Number: US-009507513-1209USA001005

PATIENT
  Age: 55 Year
  Sex: Female
  Weight: 77.98 kg

DRUGS (2)
  1. CLARITIN-D 12 HOUR [Suspect]
     Indication: HYPERSENSITIVITY
     Dosage: 5 mg, Once
     Route: 048
     Dates: start: 20120815, end: 20120815
  2. CLARITIN-D 12 HOUR [Suspect]
     Indication: SINUS DISORDER

REACTIONS (2)
  - Feeling abnormal [Recovered/Resolved]
  - Drug effect decreased [Unknown]
